FAERS Safety Report 12640341 (Version 1)
Quarter: 2016Q3

REPORT INFORMATION
  Report Type: Spontaneous
  Country: IT (occurrence: IT)
  Receive Date: 20160810
  Receipt Date: 20160810
  Transmission Date: 20161109
  Serious: Yes (Other)
  Sender: FDA-Public Use
  Company Number: IT-AUROBINDO-AUR-APL-2016-10043

PATIENT
  Sex: Female

DRUGS (1)
  1. PRAMIPEXOLE TABLET [Suspect]
     Active Substance: PRAMIPEXOLE
     Indication: PARKINSON^S DISEASE
     Dosage: 2.1 MG, DAILY
     Route: 048
     Dates: start: 201605, end: 201607

REACTIONS (3)
  - Drug effect decreased [Unknown]
  - Condition aggravated [Unknown]
  - Product substitution issue [Unknown]

NARRATIVE: CASE EVENT DATE: 201605
